FAERS Safety Report 19020130 (Version 1)
Quarter: 2021Q1

REPORT INFORMATION
  Report Type: Spontaneous
  Country: SE (occurrence: SE)
  Receive Date: 20210317
  Receipt Date: 20210317
  Transmission Date: 20210420
  Serious: Yes (Other)
  Sender: FDA-Public Use
  Company Number: SE-ELI_LILLY_AND_COMPANY-SE202103005615

PATIENT
  Age: 51 Year
  Sex: Female

DRUGS (1)
  1. TALTZ [Suspect]
     Active Substance: IXEKIZUMAB
     Indication: PSORIATIC ARTHROPATHY
     Dosage: 80 MG, UNKNOWN
     Route: 065
     Dates: start: 20210212, end: 20210227

REACTIONS (2)
  - Dyspnoea [Recovering/Resolving]
  - Injection site swelling [Recovering/Resolving]

NARRATIVE: CASE EVENT DATE: 20210301
